FAERS Safety Report 4499301-0 (Version None)
Quarter: 2004Q4

REPORT INFORMATION
  Report Type: 
  Country: None (occurrence: None)
  Receive Date: 20040928
  Receipt Date: 20040728
  Transmission Date: 20050328
  Serious: No
  Sender: FDA-Public Use
  Company Number: 04P-163-0268306-00

PATIENT
  Age: 49 Year
  Sex: Female
  Weight: 54.4316 kg

DRUGS (9)
  1. HUMIRA [Suspect]
     Indication: RHEUMATOID ARTHRITIS
     Dosage: 40 MG, 1 IN 2 WK, SUBCUTANEOUS
     Route: 058
     Dates: start: 20040716
  2. METHOTREXTATE SODIUM [Concomitant]
  3. LEUKOVORAN [Concomitant]
  4. METHYLPREDNISOLONE [Concomitant]
  5. LEVOTHYROXINE SODIUM [Concomitant]
  6. PANTOPRAZOLE [Concomitant]
  7. PHENYTOIN SODIUM [Concomitant]
  8. VICODIN [Concomitant]
  9. CARISOPRODOL [Concomitant]

REACTIONS (3)
  - OPEN WOUND [None]
  - PRURITUS GENERALISED [None]
  - SCRATCH [None]
